FAERS Safety Report 10993228 (Version 1)
Quarter: 2015Q2

REPORT INFORMATION
  Report Type: Report from Study
  Country: IE (occurrence: IE)
  Receive Date: 20150407
  Receipt Date: 20150407
  Transmission Date: 20150821
  Serious: Yes (Death, Hospitalization)
  Sender: FDA-Public Use
  Company Number: IE-AMGEN-IRLSL2015032043

PATIENT
  Age: 69 Year
  Sex: Male

DRUGS (11)
  1. MOTILIUM [Concomitant]
     Active Substance: DOMPERIDONE
     Dosage: UNK UNK, AS NECESSARY
  2. RUBICIN                            /00330902/ [Concomitant]
     Dosage: UNK
  3. NEULASTA [Suspect]
     Active Substance: PEGFILGRASTIM
     Indication: HEPATOCELLULAR CARCINOMA
     Dosage: 6MG/0.6MLS, WEEKLY
     Route: 058
     Dates: start: 20150206
  4. LYRICA [Concomitant]
     Active Substance: PREGABALIN
     Dosage: 25 MG, BD
  5. SOLPADOL                           /00116401/ [Concomitant]
     Dosage: UNK UNK, AS NECESSARY
  6. IMODIUM [Concomitant]
     Active Substance: LOPERAMIDE HYDROCHLORIDE
     Dosage: UNK
  7. TRADOL [Concomitant]
     Active Substance: TRAMADOL HYDROCHLORIDE
     Dosage: UNK, AS NECESSARY
  8. PANTOFLUX                          /01263204/ [Concomitant]
     Dosage: 40 MG, OD
  9. CYCLIZINE [Concomitant]
     Active Substance: CYCLIZINE
     Dosage: UNK, AS NECESSARY
  10. AMLODIPINE [Concomitant]
     Active Substance: AMLODIPINE BESYLATE
     Dosage: 5 MG, UNK
  11. LISINOPRIL. [Concomitant]
     Active Substance: LISINOPRIL
     Dosage: UNK

REACTIONS (2)
  - Hospitalisation [Unknown]
  - Death [Fatal]
